FAERS Safety Report 6933850-8 (Version None)
Quarter: 2010Q3

REPORT INFORMATION
  Report Type: 
  Country: None (occurrence: None)
  Receive Date: 20100820
  Receipt Date: 20100812
  Transmission Date: 20110219
  Serious: Yes (Death, Hospitalization)
  Sender: FDA-Public Use
  Company Number: GB-ELI_LILLY_AND_COMPANY-GB201001000974

PATIENT
  Sex: Male
  Weight: 101.3 kg

DRUGS (12)
  1. PEMETREXED [Suspect]
     Indication: LUNG NEOPLASM MALIGNANT
     Dosage: 500 MG, ONCE EVERY THREE WEEKS
     Route: 042
     Dates: start: 20090828
  2. CISPLATIN [Suspect]
     Indication: LUNG NEOPLASM MALIGNANT
     Dosage: 75 MG/M2, ONCE EVERY THREE WEEKS
     Route: 042
     Dates: start: 20090828
  3. FOLIC ACID [Concomitant]
     Indication: ANAEMIA
     Dates: start: 20091006, end: 20100101
  4. OXYCONTIN [Concomitant]
     Indication: PAIN
     Dosage: 40 MG, UNK
     Dates: start: 20091006, end: 20091223
  5. OXYCONTIN [Concomitant]
     Dosage: 80 MG, UNK
     Dates: start: 20091222, end: 20091224
  6. OXYCONTIN [Concomitant]
     Dosage: 100 MG, UNK
     Dates: start: 20091223, end: 20091224
  7. OXYCONTIN [Concomitant]
     Dosage: 100 MG, UNK
     Dates: start: 20091224
  8. OXYCODONE [Concomitant]
     Indication: PAIN
     Dosage: 5 MG, UNK
     Dates: start: 20091006, end: 20100101
  9. ENOXAPARIN SODIUM [Concomitant]
     Indication: ANTICOAGULANT THERAPY
     Dates: start: 20091006, end: 20100101
  10. METOCLOPRAMIDE [Concomitant]
     Indication: NAUSEA
     Dates: start: 20091006, end: 20100101
  11. K+10 [Concomitant]
     Indication: ELECTROLYTE IMBALANCE
     Dates: start: 20091006, end: 20100101
  12. SIMVASTATIN [Concomitant]
     Indication: HYPERLIPIDAEMIA
     Dates: start: 20091006, end: 20100101

REACTIONS (7)
  - ABDOMINAL PAIN UPPER [None]
  - ATRIAL FIBRILLATION [None]
  - CONFUSIONAL STATE [None]
  - DYSPNOEA [None]
  - PNEUMONIA [None]
  - PULMONARY EMBOLISM [None]
  - TINNITUS [None]
